FAERS Safety Report 18854303 (Version 6)
Quarter: 2023Q1

REPORT INFORMATION
  Report Type: Spontaneous
  Country: US (occurrence: US)
  Receive Date: 20210205
  Receipt Date: 20230310
  Transmission Date: 20230418
  Serious: Yes (Other)
  Sender: FDA-Public Use
  Company Number: US-PFIZER INC-2021101689

PATIENT
  Age: 70 Year
  Sex: Female
  Weight: 90.26 kg

DRUGS (3)
  1. XELJANZ XR [Suspect]
     Active Substance: TOFACITINIB CITRATE
     Indication: Rheumatoid arthritis
     Dosage: 11 MG, 1X/DAY
     Route: 048
     Dates: start: 201501
  2. XELJANZ XR [Suspect]
     Active Substance: TOFACITINIB CITRATE
     Dosage: 11 MG, ALTERNATE DAY (ONE TABLET EVERY OTHER DAY BY MOUTH)
     Route: 048
     Dates: start: 20201214
  3. SIMETHICONE (DIMETHICONE) [Concomitant]
     Active Substance: DIMETHICONE
     Dosage: UNK

REACTIONS (10)
  - Drug ineffective [Unknown]
  - Depression [Unknown]
  - Psoriatic arthropathy [Unknown]
  - General physical health deterioration [Unknown]
  - Autoimmune disorder [Unknown]
  - Osteogenesis imperfecta [Unknown]
  - Off label use [Unknown]
  - Pain [Not Recovered/Not Resolved]
  - Amnesia [Unknown]
  - Arthralgia [Unknown]

NARRATIVE: CASE EVENT DATE: 20190101
